FAERS Safety Report 20851160 (Version 1)
Quarter: 2022Q2

REPORT INFORMATION
  Report Type: Report from Study
  Country: US (occurrence: US)
  Receive Date: 20220519
  Receipt Date: 20220519
  Transmission Date: 20220721
  Serious: Yes (Hospitalization)
  Sender: FDA-Public Use
  Company Number: US-VERTEX PHARMACEUTICALS-2022-007376

PATIENT
  Age: 15 Year
  Sex: Female
  Weight: 55 kg

DRUGS (11)
  1. ELEXACAFTOR\IVACAFTOR\TEZACAFTOR [Suspect]
     Active Substance: ELEXACAFTOR\IVACAFTOR\TEZACAFTOR
     Indication: Cystic fibrosis
     Dosage: VX-445 100MG, TEZ 50MG, IVA 75MG, 2 TABLETS IN AM AND IVA 150MG IN PM
     Route: 048
     Dates: start: 20220119
  2. PLACEBO [Suspect]
     Active Substance: UNSPECIFIED INGREDIENT
     Indication: Cystic fibrosis
     Dosage: 2 TABLETS IN MORNING
     Route: 048
     Dates: start: 20220119
  3. ALBUTEROL [Concomitant]
     Active Substance: ALBUTEROL
     Indication: Respiratory disorder
     Dosage: 3 ML, PRN Q4H
     Dates: start: 20210421
  4. ALBUTEROL SULFATE [Concomitant]
     Active Substance: ALBUTEROL SULFATE
     Indication: Respiratory disorder
     Dosage: 2 PUFFS, PRN Q4H
     Dates: start: 20210609
  5. CREON [Concomitant]
     Active Substance: PANCRELIPASE AMYLASE\PANCRELIPASE LIPASE\PANCRELIPASE PROTEASE
     Indication: Pancreatic failure
     Dosage: 36000 UNITS 2 CAPS W/MEALS
     Route: 048
     Dates: start: 20210421
  6. MIRALAX [Concomitant]
     Active Substance: POLYETHYLENE GLYCOL 3350
     Indication: Constipation prophylaxis
     Dosage: 17 GRAM, BID
     Route: 048
     Dates: start: 20210510, end: 20220512
  7. MIRALAX [Concomitant]
     Active Substance: POLYETHYLENE GLYCOL 3350
     Dosage: 1 CAP, QD
     Route: 048
     Dates: start: 20220512
  8. SINGULAIR [Concomitant]
     Active Substance: MONTELUKAST SODIUM
     Indication: Hypersensitivity
     Dosage: 10 MG, 1 TAB, QD
     Route: 048
     Dates: start: 20210421
  9. XYZAL [Concomitant]
     Active Substance: LEVOCETIRIZINE DIHYDROCHLORIDE
     Indication: Hypersensitivity
     Dosage: 1 TAB, 5 MG, QD
     Route: 048
     Dates: start: 20210421
  10. DEKAS ESSENTIAL [Concomitant]
     Dosage: 1 CAP, QD
     Route: 048
     Dates: start: 20210609
  11. TRIKAFTA [Concomitant]
     Active Substance: ELEXACAFTOR\IVACAFTOR\TEZACAFTOR
     Indication: Cystic fibrosis
     Dosage: 2 TABS AM, 1 TAB PM
     Dates: start: 20210422, end: 20211220

REACTIONS (1)
  - Distal intestinal obstruction syndrome [Recovered/Resolved]

NARRATIVE: CASE EVENT DATE: 20220510
